FAERS Safety Report 18886733 (Version 3)
Quarter: 2022Q3

REPORT INFORMATION
  Report Type: Spontaneous
  Country: JP (occurrence: JP)
  Receive Date: 20210212
  Receipt Date: 20220830
  Transmission Date: 20221026
  Serious: Yes (Other)
  Sender: FDA-Public Use
  Company Number: JP-AMGEN-JPNSP2020141719

PATIENT
  Age: 77 Year
  Sex: Male
  Weight: 42 kg

DRUGS (10)
  1. EVENITY [Suspect]
     Active Substance: ROMOSOZUMAB-AQQG
     Indication: Osteoporosis
     Dosage: 210 MILLIGRAM, QMO
     Route: 058
     Dates: start: 20191210, end: 202008
  2. VITAMIN D [Concomitant]
     Active Substance: VITAMIN D NOS
     Indication: Osteoporosis
     Dosage: UNK
  3. CALCIUM [Concomitant]
     Active Substance: CALCIUM
     Indication: Osteoporosis
     Dosage: UNK, QD
  4. CALCIUM L-ASPARTATE [Concomitant]
     Dosage: 2 DOSAGE FORM, QD
  5. ALFACALCIDOL [Concomitant]
     Active Substance: ALFACALCIDOL
     Dosage: 1 MICROGRAM, QD IN MORNING
  6. FELBINAC [Concomitant]
     Active Substance: FELBINAC
     Dosage: UNK, APPLIED FEW TIME
  7. LOSARTAN POTASSIUM [Concomitant]
     Active Substance: LOSARTAN POTASSIUM
     Dosage: 1 DOSAGE FORM, QD
  8. CEFDITOREN PIVOXIL [Concomitant]
     Active Substance: CEFDITOREN PIVOXIL
     Dosage: UNK
  9. LORNOXICAM [Concomitant]
     Active Substance: LORNOXICAM
     Dosage: UNK
  10. EYECARE [HYALURONATE SODIUM] [Concomitant]
     Dosage: MORNING, NOON, EVENING, BEFORE BEDTIME (OPHTHALMIC SOLUTION)

REACTIONS (3)
  - Tooth extraction [Unknown]
  - Osteonecrosis of jaw [Recovering/Resolving]
  - Periodontitis [Unknown]

NARRATIVE: CASE EVENT DATE: 20200303
